FAERS Safety Report 21164868 (Version 2)
Quarter: 2022Q4

REPORT INFORMATION
  Report Type: Spontaneous
  Country: CA (occurrence: CA)
  Receive Date: 20220803
  Receipt Date: 20221001
  Transmission Date: 20230113
  Serious: Yes (Other)
  Sender: FDA-Public Use
  Company Number: CA-AUROBINDO-AUR-APL-2022-029670

PATIENT
  Age: 65 Year
  Sex: Male

DRUGS (8)
  1. MONTELUKAST [Suspect]
     Active Substance: MONTELUKAST SODIUM
     Indication: Asthma
     Dosage: 10 MILLIGRAM, ONCE A DAY
     Route: 048
  2. MONTELUKAST [Suspect]
     Active Substance: MONTELUKAST SODIUM
     Dosage: 1 DOSAGE FORM, ONCE A DAY
     Route: 048
  3. OMALIZUMAB [Suspect]
     Active Substance: OMALIZUMAB
     Indication: Asthma
     Dosage: 375 MILLIGRAM ONCE EVERY 2 WEEKS
     Route: 058
  4. ALBUTEROL [Suspect]
     Active Substance: ALBUTEROL
     Indication: Asthma
     Dosage: 400 MICROGRAM
     Route: 065
  5. ADVAIR HFA [Concomitant]
     Active Substance: FLUTICASONE PROPIONATE\SALMETEROL XINAFOATE
     Indication: Asthma
     Dosage: 1 DOSAGE FORM
     Route: 065
  6. PREDNISONE [Concomitant]
     Active Substance: PREDNISONE
     Indication: Asthma
     Dosage: 1 DOSAGE FORM
     Route: 048
  7. SPIRIVA [Concomitant]
     Active Substance: TIOTROPIUM BROMIDE MONOHYDRATE
     Indication: Asthma
     Dosage: 1 DOSAGE FORM,ONCE A DAY
     Route: 048
  8. TERBUTALINE [Concomitant]
     Active Substance: TERBUTALINE
     Indication: Asthma
     Dosage: 1 DOSAGE FORM

REACTIONS (10)
  - Asthma [Unknown]
  - Blood immunoglobulin E increased [Unknown]
  - Chest discomfort [Unknown]
  - Cough [Unknown]
  - Dyspnoea [Unknown]
  - Mental disorder [Unknown]
  - Nasal congestion [Unknown]
  - Rhinorrhoea [Unknown]
  - Speech disorder [Unknown]
  - Weight increased [Unknown]
